FAERS Safety Report 8799151 (Version 2)
Quarter: 2014Q2

REPORT INFORMATION
  Report Type: Spontaneous
  Country: US (occurrence: US)
  Receive Date: 20120920
  Receipt Date: 20140415
  Transmission Date: 20141212
  Serious: No
  Sender: FDA-Public Use
  Company Number: US-ASTRAZENECA-2012SE14083

PATIENT
  Age: 72 Year
  Sex: Female

DRUGS (38)
  1. LISINOPRIL [Suspect]
     Route: 048
  2. LISINOPRIL [Suspect]
     Route: 048
  3. ATENOLOL [Suspect]
     Route: 048
  4. NEXIUM [Suspect]
     Route: 048
  5. METFORMIN (NON AZ PRODUCT) [Suspect]
     Route: 065
  6. SEREVENT DISKUS [Concomitant]
     Dosage: 1 PUFF USUALLY ONLY USE ONCE A DAY
  7. FLOVENT INHALER [Concomitant]
     Dosage: 1 PUFF USUALLY ONLY USE ONCE A DAY
  8. JANUVIA [Concomitant]
  9. MOBIC [Concomitant]
  10. LANSOPRAZOLE [Concomitant]
  11. ALLEGRA [Concomitant]
  12. NOVOLOG INSULIN [Concomitant]
     Dosage: ACB, ACL, ACS AND HS DEPENDS ON BGS
     Route: 058
  13. LANTUS [Concomitant]
  14. DILTIAZEM [Concomitant]
  15. GLIPIZIDE [Concomitant]
     Dosage: 2 TAB IN AM AND A TAB ACS
  16. EZETIMIBE [Concomitant]
  17. ASPIRIN [Concomitant]
     Dosage: 1 TABLET DAILY USUALLY AT 2000
  18. OXYCODONE [Concomitant]
     Dosage: 1 DF BID AM, HALF TAB 1100-1200, AND AT 2000, HS TAKING 1-A5 TABLETS TO 1 AND HALF TAB
  19. TYLENOL [Concomitant]
     Indication: PAIN
     Dosage: HALF TO ONE TAB, PRN
  20. CYCLOBENZAPRINE [Concomitant]
     Indication: MUSCLE SPASMS
  21. CYCLOBENZAPRINE [Concomitant]
     Indication: MUSCLE SPASMS
     Dosage: EVERY SIX HOURS PRN PAIN
  22. FISH OIL [Concomitant]
  23. CALCIUM CARBONATE [Concomitant]
  24. FERROUS SULFATE [Concomitant]
     Indication: RESTLESS LEGS SYNDROME
     Dosage: 1 TABLET DAILY AT 2000
  25. COD LIVER OIL [Concomitant]
  26. HYDROCHLOROTHIAZIDE [Concomitant]
  27. FUROSEMIDE [Concomitant]
     Indication: OEDEMA
  28. ALBUTEROL INHALER [Concomitant]
     Indication: ASTHMA
     Dosage: 2 PUFFS PRN
     Route: 055
  29. ALBUTEROL INHALER [Concomitant]
     Indication: DYSPNOEA
     Dosage: 2 PUFFS PRN
     Route: 055
  30. EPIPEN INJECTOR [Concomitant]
     Indication: ARTHROPOD STING
  31. EPIPEN INJECTOR [Concomitant]
     Indication: ANAPHYLACTIC REACTION
  32. DOCUSATE SODIUM [Concomitant]
     Indication: CONSTIPATION
     Dosage: ONE DAILY, SOMETIMES 1 CAPSULE EXTRA AT HS
  33. AMLODIPINE [Concomitant]
  34. GARLIC [Concomitant]
  35. ERGOCALCIFEROL [Concomitant]
  36. CLEARLAX [Concomitant]
     Dosage: WITH 8 OZ OF H2O
  37. LEVOTHYROXINE [Concomitant]
  38. INJECTION [Concomitant]

REACTIONS (14)
  - Back pain [Unknown]
  - Muscle spasms [Unknown]
  - Tremor [Unknown]
  - Selective mutism [Unknown]
  - Pain [Unknown]
  - Pain [Unknown]
  - Arthralgia [Unknown]
  - Asthenia [Unknown]
  - Nausea [Unknown]
  - Vomiting [Unknown]
  - Hyperhidrosis [Unknown]
  - Fatigue [Unknown]
  - Drug hypersensitivity [Unknown]
  - Off label use [Unknown]
